FAERS Safety Report 9555200 (Version 3)
Quarter: 2014Q3

REPORT INFORMATION
  Report Type: Spontaneous
  Country: US (occurrence: None)
  Receive Date: 20130815
  Receipt Date: 20140703
  Transmission Date: 20150326
  Serious: Yes (Other)
  Sender: FDA-Public Use
  Company Number: ADR-2012-01440

PATIENT
  Age: 56 Year
  Sex: Male

DRUGS (2)
  1. COMPOUNDED BACLOFEN INTRATHECAL 1000MCG/ML [Suspect]
     Active Substance: BACLOFEN
     Indication: MUSCLE SPASTICITY
     Dates: start: 20140227
  2. LIORESAL [Suspect]
     Active Substance: BACLOFEN
     Indication: MUSCLE SPASTICITY
     Dates: start: 20100804, end: 20140227

REACTIONS (10)
  - Performance status decreased [None]
  - Clonus [None]
  - Tremor [None]
  - Middle insomnia [None]
  - Muscle spasms [None]
  - Drug level increased [None]
  - Gait disturbance [None]
  - Muscular weakness [None]
  - Muscle tightness [None]
  - Condition aggravated [None]

NARRATIVE: CASE EVENT DATE: 20100804
